FAERS Safety Report 4630552-8 (Version None)
Quarter: 2005Q2

REPORT INFORMATION
  Report Type: 
  Country: None (occurrence: None)
  Receive Date: 20050408
  Receipt Date: 20050331
  Transmission Date: 20051028
  Serious: Yes (Other)
  Sender: FDA-Public Use
  Company Number: FR-GLAXOSMITHKLINE-B0376761A

PATIENT
  Age: 80 Year
  Sex: Male

DRUGS (5)
  1. DEROXAT [Suspect]
     Indication: DEPRESSION
     Dosage: 20MG PER DAY
     Route: 048
     Dates: start: 20050201
  2. PLAVIX [Suspect]
     Indication: ILL-DEFINED DISORDER
     Route: 048
  3. TORENTAL [Suspect]
     Indication: ILL-DEFINED DISORDER
     Route: 065
  4. SINEMET [Concomitant]
     Route: 048
  5. MOTILIUM [Concomitant]
     Route: 065

REACTIONS (3)
  - ECCHYMOSIS [None]
  - INFLAMMATION [None]
  - PURPURA NON-THROMBOCYTOPENIC [None]
